FAERS Safety Report 7908553-3 (Version None)
Quarter: 2011Q4

REPORT INFORMATION
  Report Type: 
  Country: None (occurrence: None)
  Receive Date: 20111111
  Receipt Date: 20111109
  Transmission Date: 20120403
  Serious: Yes (Other)
  Sender: FDA-Public Use
  Company Number: US-PFIZER INC-2011274972

PATIENT

DRUGS (1)
  1. LIPITOR [Suspect]
     Dosage: UNK

REACTIONS (1)
  - INCLUSION BODY MYOSITIS [None]
